FAERS Safety Report 7292019-0 (Version None)
Quarter: 2011Q1

REPORT INFORMATION
  Report Type: 
  Country: None (occurrence: None)
  Receive Date: 20110215
  Receipt Date: 20110204
  Transmission Date: 20110831
  Serious: Yes (Hospitalization, Other)
  Sender: FDA-Public Use
  Company Number: US-BIOGENIDEC-2011BI002087

PATIENT
  Sex: Male
  Weight: 104 kg

DRUGS (1)
  1. TYSABRI [Suspect]
     Indication: MULTIPLE SCLEROSIS
     Route: 042
     Dates: start: 20080730

REACTIONS (6)
  - HAND FRACTURE [None]
  - CONVULSION [None]
  - GAIT DISTURBANCE [None]
  - EXCORIATION [None]
  - LIP INJURY [None]
  - ATAXIA [None]
